FAERS Safety Report 25791719 (Version 2)
Quarter: 2025Q3

REPORT INFORMATION
  Report Type: Spontaneous
  Country: US (occurrence: US)
  Receive Date: 20250911
  Receipt Date: 20250925
  Transmission Date: 20251021
  Serious: Yes (Hospitalization)
  Sender: TEVA
  Company Number: US-TEVA-VS-3368632

PATIENT
  Age: 58 Year
  Sex: Female

DRUGS (4)
  1. METHOTREXATE [Suspect]
     Active Substance: METHOTREXATE
     Indication: Retinopathy
     Route: 065
  2. METHOTREXATE [Suspect]
     Active Substance: METHOTREXATE
     Indication: Retinopathy
     Dosage: DOSE INCREASED
     Route: 065
  3. ADALIMUMAB [Suspect]
     Active Substance: ADALIMUMAB
     Indication: Retinopathy
     Route: 058
  4. COBALT [Suspect]
     Active Substance: COBALT
     Indication: Knee arthroplasty
     Route: 065
     Dates: start: 2012, end: 2022

REACTIONS (13)
  - Toxicity to various agents [Recovering/Resolving]
  - Capillaritis [Recovering/Resolving]
  - Drug ineffective [Unknown]
  - Chorioretinitis [Recovering/Resolving]
  - Cystoid macular oedema [Recovering/Resolving]
  - Retinal haemorrhage [Recovering/Resolving]
  - Noninfective chorioretinitis [Recovering/Resolving]
  - Retinopathy [Recovering/Resolving]
  - Pseudopapilloedema [Recovering/Resolving]
  - Vision blurred [Recovering/Resolving]
  - Photopsia [Recovering/Resolving]
  - Scar [Recovering/Resolving]
  - Retinal disorder [Recovering/Resolving]
